FAERS Safety Report 14737681 (Version 1)
Quarter: 2018Q2

REPORT INFORMATION
  Report Type: Spontaneous
  Country: FR (occurrence: FR)
  Receive Date: 20180409
  Receipt Date: 20180409
  Transmission Date: 20180711
  Serious: Yes (Life-Threatening)
  Sender: FDA-Public Use
  Company Number: FR-ALLERGAN-1819569US

PATIENT
  Age: 38 Year
  Sex: Male

DRUGS (6)
  1. ESCITALOPRAM OXALATE - BP [Interacting]
     Active Substance: ESCITALOPRAM OXALATE
     Dosage: 1 DF, QD
     Route: 048
  2. URBANYL [Interacting]
     Active Substance: CLOBAZAM
     Indication: PRODUCT USED FOR UNKNOWN INDICATION
     Dosage: 0.5 DF, TID
     Route: 065
  3. LYRICA [Interacting]
     Active Substance: PREGABALIN
     Indication: NEURALGIA
     Dosage: 5 DF, DAILY (2 DF IN THE MORNING AND 3 DF IN THE EVENING)
     Route: 065
  4. LYRICA [Interacting]
     Active Substance: PREGABALIN
     Dosage: 1000 MG, QD
     Route: 065
     Dates: start: 20180228
  5. MONOCRIXO [Interacting]
     Active Substance: TRAMADOL HYDROCHLORIDE
     Indication: PRODUCT USED FOR UNKNOWN INDICATION
     Dosage: 150 MG, QHS
     Route: 065
  6. ESCITALOPRAM OXALATE - BP [Suspect]
     Active Substance: ESCITALOPRAM OXALATE
     Indication: PRODUCT USED FOR UNKNOWN INDICATION
     Dosage: 1 DF, BID
     Route: 048
     Dates: start: 2017

REACTIONS (4)
  - Drug interaction [Unknown]
  - Prescribed overdose [Unknown]
  - Somnolence [Unknown]
  - Drug tolerance [Unknown]
